FAERS Safety Report 24132915 (Version 2)
Quarter: 2024Q3

REPORT INFORMATION
  Report Type: Spontaneous
  Country: IN (occurrence: IN)
  Receive Date: 20240724
  Receipt Date: 20240809
  Transmission Date: 20241016
  Serious: Yes (Hospitalization)
  Sender: AMGEN
  Company Number: IN-AMGEN-INDSP2024141595

PATIENT
  Age: 5 Year
  Sex: Male

DRUGS (11)
  1. FILGRASTIM [Suspect]
     Active Substance: FILGRASTIM
     Indication: Nephrotic syndrome
     Dosage: 0.25 MILLIGRAM, QD
     Route: 065
  2. FILGRASTIM [Suspect]
     Active Substance: FILGRASTIM
     Indication: Off label use
  3. METHYLCOBALAMIN [Concomitant]
     Active Substance: METHYLCOBALAMIN
     Dosage: 1000 MICROGRAM, QD
     Route: 042
  4. FOLIC ACID [Concomitant]
     Active Substance: FOLIC ACID
     Dosage: 1.75 MILLIGRAM, QD
     Route: 048
  5. AMIKACIN [Concomitant]
     Active Substance: AMIKACIN
     Dosage: 240 MILLIGRAM, QD
     Route: 042
  6. SULBACTAM [Concomitant]
     Active Substance: SULBACTAM
     Dosage: 500 MILLIGRAM, BID
     Route: 042
  7. PREDNISOLONE [Concomitant]
     Active Substance: PREDNISOLONE
     Dosage: 10 MILLIGRAM, EVERY ALTERNATE DAY
     Route: 048
  8. METHYLCOBALAMIN [Concomitant]
     Active Substance: METHYLCOBALAMIN
     Dosage: 1500 MICROGRAM, QWK, FOR 2 MONTHS
     Route: 048
  9. LEVETIRACETAM [Concomitant]
     Active Substance: LEVETIRACETAM
     Dosage: 2.5 MILLIGRAM, BID
     Route: 048
  10. CALCIUM [Concomitant]
     Active Substance: CALCIUM
     Dosage: 5 MILLIGRAM, QD
     Route: 048
  11. FERROUS ASCORBATE [Concomitant]
     Active Substance: FERROUS ASCORBATE
     Dosage: 5 MILLIGRAM, QD

REACTIONS (2)
  - Staphylococcal infection [Unknown]
  - Off label use [Unknown]
